FAERS Safety Report 4636820-8 (Version None)
Quarter: 2005Q2

REPORT INFORMATION
  Report Type: 
  Country: None (occurrence: None)
  Receive Date: 20050414
  Receipt Date: 20050406
  Transmission Date: 20051028
  Serious: Yes (Death, Life-Threatening, Other)
  Sender: FDA-Public Use
  Company Number: 2005-03-1034

PATIENT
  Age: 56 Year
  Sex: Male

DRUGS (10)
  1. PEG-INTERFERON ALFA-2B INJECTABLE [Suspect]
     Indication: HEPATITIS C VIRUS
     Dosage: 150 MCG QWK SUBCUTANEOUS
     Route: 058
     Dates: start: 20041012, end: 20050310
  2. RIBAVIRIN [Suspect]
     Indication: HEPATITIS C VIRUS
     Dosage: 800 MG QD ORAL
     Route: 048
     Dates: start: 20041012, end: 20050310
  3. AMIODARONE [Concomitant]
  4. OMEPRA OLE [Concomitant]
  5. SIMVASTATIN [Concomitant]
  6. ASPIRIN [Concomitant]
  7. FRUSEMIDE [Concomitant]
  8. CARVEDILOL [Concomitant]
  9. RAMIPRIL [Concomitant]
  10. SPIRONOLACTONE [Concomitant]

REACTIONS (4)
  - CORONARY ARTERY ATHEROSCLEROSIS [None]
  - HYPERTENSION [None]
  - HYPERTHYROIDISM [None]
  - MYOCARDIAL INFARCTION [None]
